FAERS Safety Report 21630015 (Version 1)
Quarter: 2022Q4

REPORT INFORMATION
  Report Type: Spontaneous
  Country: US (occurrence: None)
  Receive Date: 20221122
  Receipt Date: 20221122
  Transmission Date: 20230113
  Serious: Yes (Death)
  Sender: FDA-Public Use
  Company Number: None

PATIENT
  Age: 61 Year
  Sex: Female
  Weight: 54 kg

DRUGS (4)
  1. RANITIDINE [Suspect]
     Active Substance: RANITIDINE
     Indication: Oesophagitis
     Dosage: OTHER QUANTITY : 1 TABLET(S)?FREQUENCY : TWICE A DAY  ORAL?
     Route: 048
  2. RANITIDINE [Concomitant]
     Active Substance: RANITIDINE
  3. Premarin tablets [Concomitant]
  4. LEVOXYL [Concomitant]
     Active Substance: LEVOTHYROXINE SODIUM

REACTIONS (3)
  - Cardiac arrest [None]
  - Discharge [None]
  - Arrhythmia [None]

NARRATIVE: CASE EVENT DATE: 19990923
